FAERS Safety Report 14989194 (Version 2)
Quarter: 2018Q3

REPORT INFORMATION
  Report Type: Spontaneous
  Country: US (occurrence: US)
  Receive Date: 20180608
  Receipt Date: 20180830
  Transmission Date: 20181010
  Serious: Yes (Hospitalization, Other)
  Sender: FDA-Public Use
  Company Number: US-009507513-1806USA001156

PATIENT
  Age: 58 Year
  Sex: Male

DRUGS (5)
  1. TEMODAR [Suspect]
     Active Substance: TEMOZOLOMIDE
     Indication: ADJUVANT THERAPY
     Dosage: UNK
     Route: 048
  2. TEMODAR [Suspect]
     Active Substance: TEMOZOLOMIDE
     Indication: GLIOBLASTOMA MULTIFORME
  3. ADENOVIRUS VACCINE [Suspect]
     Active Substance: ADENOVIRUS VACCINE
     Indication: BRAIN NEOPLASM MALIGNANT
  4. TEMODAR [Suspect]
     Active Substance: TEMOZOLOMIDE
     Indication: BRAIN NEOPLASM MALIGNANT
  5. ADENOVIRUS VACCINE [Suspect]
     Active Substance: ADENOVIRUS VACCINE
     Indication: GLIOBLASTOMA MULTIFORME
     Dosage: UNK

REACTIONS (1)
  - Systemic viral infection [Unknown]
